FAERS Safety Report 4412299-6 (Version None)
Quarter: 2004Q2

REPORT INFORMATION
  Report Type: 
  Country: None (occurrence: None)
  Receive Date: 20040630
  Receipt Date: 20040317
  Transmission Date: 20050107
  Serious: No
  Sender: FDA-Public Use
  Company Number: 04P-163-0253808-00

PATIENT
  Sex: Female
  Weight: 75.2971 kg

DRUGS (13)
  1. HUMIRA [Suspect]
     Indication: RHEUMATOID ARTHRITIS
     Dosage: 40 MG,  1 IN 2 WK, SUBCUTANEOUS
     Route: 058
     Dates: start: 20030101
  2. MORPHINE SULFATE [Concomitant]
  3. LEVOTHYROXINE SODIUM [Concomitant]
  4. BUPROPION HYDROCHLORIDE [Concomitant]
  5. NAPROXEN [Concomitant]
  6. SERTRALINE HYDROCHLORIDE [Concomitant]
  7. FOLIC ACID [Concomitant]
  8. HYDROCODONE [Concomitant]
  9. DIAZEPAM [Concomitant]
  10. LISINOPRIL [Concomitant]
  11. METHOTREXATE [Concomitant]
  12. TOPIRMATE [Concomitant]
  13. ORLISTAT [Concomitant]

REACTIONS (3)
  - BRONCHITIS [None]
  - JOINT SPRAIN [None]
  - PARAESTHESIA [None]
